FAERS Safety Report 17641586 (Version 1)
Quarter: 2020Q2

REPORT INFORMATION
  Report Type: Report from Study
  Country: US (occurrence: US)
  Receive Date: 20200407
  Receipt Date: 20200407
  Transmission Date: 20200713
  Serious: No
  Sender: FDA-Public Use
  Company Number: NVSC2020US090766

PATIENT
  Age: 40 Year
  Sex: Male

DRUGS (1)
  1. COSENTYX [Suspect]
     Active Substance: SECUKINUMAB
     Indication: PSORIASIS
     Dosage: 300 MG (INJECT 300 MG(2 PENS)SUBCUTANEOUSLY AT WEEK 4, THEN 300 MG (2 PENS)EVERY 4 WEEKS THEREAFTER)
     Route: 058

REACTIONS (2)
  - Pruritus [Unknown]
  - Skin irritation [Unknown]
